FAERS Safety Report 8347260-2 (Version None)
Quarter: 2012Q2

REPORT INFORMATION
  Report Type: 
  Country: None (occurrence: None)
  Receive Date: 20120509
  Receipt Date: 20120507
  Transmission Date: 20120825
  Serious: No
  Sender: FDA-Public Use
  Company Number: US-PFIZER INC-2012111368

PATIENT
  Sex: Female

DRUGS (3)
  1. ESTRING [Suspect]
     Dosage: UNK
     Route: 067
     Dates: end: 20120503
  2. ESTRING [Suspect]
     Indication: BLOOD OESTROGEN DECREASED
     Dosage: 2 MG, EVERY 3 MONTHS
     Route: 067
     Dates: start: 20110725, end: 20120503
  3. NAMENDA [Concomitant]
     Indication: DEMENTIA ALZHEIMER'S TYPE
     Dosage: UNK

REACTIONS (2)
  - VULVOVAGINAL DISCOMFORT [None]
  - WRONG TECHNIQUE IN DRUG USAGE PROCESS [None]
